FAERS Safety Report 8283476-1 (Version None)
Quarter: 2012Q2

REPORT INFORMATION
  Report Type: 
  Country: None (occurrence: None)
  Receive Date: 20120413
  Receipt Date: 20120326
  Transmission Date: 20120825
  Serious: Yes (Hospitalization)
  Sender: FDA-Public Use
  Company Number: PHHY2012GR026855

PATIENT
  Age: 57 Year
  Sex: Male

DRUGS (4)
  1. MYCOPHENOLATE MOFETIL [Suspect]
     Indication: MYASTHENIA GRAVIS
     Dosage: UNK
  2. IMMUNE GLOBULIN NOS [Concomitant]
     Route: 042
  3. PREDNISOLONE [Concomitant]
     Indication: MYASTHENIA GRAVIS
     Dosage: 5 MG, UNK
  4. PYRIDOSTIGMINE BROMIDE [Concomitant]
     Indication: MYASTHENIA GRAVIS

REACTIONS (5)
  - BRAIN ABSCESS [None]
  - MUSCULAR WEAKNESS [None]
  - LISTERIOSIS [None]
  - EPILEPSY [None]
  - PYREXIA [None]
